FAERS Safety Report 17742354 (Version 2)
Quarter: 2020Q2

REPORT INFORMATION
  Report Type: Report from Study
  Country: KR (occurrence: KR)
  Receive Date: 20200505
  Receipt Date: 20200604
  Transmission Date: 20200714
  Serious: Yes (Hospitalization, Other)
  Sender: FDA-Public Use
  Company Number: KR-ROCHE-2588867

PATIENT
  Age: 79 Year
  Sex: Male
  Weight: 59 kg

DRUGS (14)
  1. TACOPEN [Concomitant]
     Indication: PELVIC PAIN
     Dosage: 1 CAP
     Route: 048
     Dates: start: 20200324, end: 20200402
  2. AMARYL [GLIMEPIRIDE] [Concomitant]
     Indication: DIABETES MELLITUS
     Route: 048
     Dates: start: 20200402
  3. CENTIREX ADVANCE [Concomitant]
     Indication: HYPOVITAMINOSIS
     Route: 048
     Dates: start: 20200402
  4. TRISONEKIT [Concomitant]
     Active Substance: CEFTRIAXONE SODIUM
     Indication: DIVERTICULITIS
     Route: 042
     Dates: start: 20200331, end: 20200403
  5. ACTIQ [Concomitant]
     Active Substance: FENTANYL CITRATE
     Indication: PELVIC PAIN
     Route: 048
     Dates: start: 20200324, end: 20200402
  6. LOPMIN [Concomitant]
     Indication: DIARRHOEA
     Route: 048
     Dates: start: 20200402, end: 20200403
  7. FEROBA YOU [Concomitant]
     Indication: ANAEMIA
     Dosage: 1 TAB
     Route: 048
     Dates: start: 20191119
  8. NORMAL SALINE [Concomitant]
     Active Substance: SODIUM CHLORIDE
     Indication: ACUTE KIDNEY INJURY
     Route: 065
     Dates: start: 20200330, end: 20200403
  9. ASPIRIN PROTECT [Concomitant]
     Active Substance: ASPIRIN
     Dosage: 1 TAB
     Route: 048
     Dates: start: 20200402
  10. ATEZOLIZUMAB. [Suspect]
     Active Substance: ATEZOLIZUMAB
     Indication: NON-SMALL CELL LUNG CANCER METASTATIC
     Route: 041
     Dates: start: 20200312
  11. GLUCOPHAGE [METFORMIN] [Concomitant]
     Indication: DIABETES MELLITUS
     Route: 048
     Dates: start: 20200401
  12. PANTOLOC [PANTOPRAZOLE] [Concomitant]
     Active Substance: PANTOPRAZOLE SODIUM
     Indication: DYSPEPSIA
     Dosage: 1 TAB
     Route: 048
     Dates: start: 20200402
  13. MEGESTROL [Concomitant]
     Active Substance: MEGESTROL
     Indication: DECREASED APPETITE
     Route: 065
     Dates: start: 20200402
  14. TRAMADOL. [Concomitant]
     Active Substance: TRAMADOL
     Indication: CANCER PAIN
     Dosage: 1 AMPOULE
     Route: 042
     Dates: start: 20200331, end: 20200331

REACTIONS (6)
  - Delirium [Recovered/Resolved]
  - Diarrhoea [Recovered/Resolved]
  - Acute kidney injury [Recovered/Resolved]
  - Decreased appetite [Recovered/Resolved]
  - Vomiting [Recovered/Resolved]
  - Asthenia [Recovered/Resolved]

NARRATIVE: CASE EVENT DATE: 20200312
